FAERS Safety Report 21242202 (Version 5)
Quarter: 2022Q4

REPORT INFORMATION
  Report Type: Report from Study
  Country: KR (occurrence: KR)
  Receive Date: 20220823
  Receipt Date: 20221213
  Transmission Date: 20230112
  Serious: Yes (Other)
  Sender: FDA-Public Use
  Company Number: KR-NOVARTISPH-NVSC2022KR186917

PATIENT
  Age: 73 Year
  Sex: Female

DRUGS (14)
  1. TRAMETINIB [Suspect]
     Active Substance: TRAMETINIB
     Indication: Thyroid cancer
     Dosage: UNK
     Route: 048
     Dates: start: 20211229
  2. DABRAFENIB [Suspect]
     Active Substance: DABRAFENIB
     Indication: Thyroid cancer
     Dosage: UNK
     Route: 048
     Dates: start: 20211228
  3. STILLEN [Concomitant]
     Indication: Spinal stenosis
     Dosage: UNK
     Route: 065
     Dates: start: 201808
  4. LEVOTHYROXINE SODIUM [Concomitant]
     Active Substance: LEVOTHYROXINE SODIUM
     Indication: Hormone therapy
     Dosage: UNK
     Route: 065
     Dates: start: 20200923
  5. OPALMON [Concomitant]
     Active Substance: LIMAPROST
     Indication: Spinal stenosis
     Dosage: UNK
     Route: 065
     Dates: start: 201808
  6. GENEXIN [Concomitant]
     Indication: Spinal stenosis
     Dosage: UNK
     Route: 065
     Dates: start: 201808
  7. TRASPEN [Concomitant]
     Indication: Spinal stenosis
     Dosage: UNK
     Route: 065
     Dates: start: 201808
  8. MIRABEGRON [Concomitant]
     Active Substance: MIRABEGRON
     Indication: Dysuria
     Dosage: UNK
     Route: 065
     Dates: start: 20220718
  9. CALCITRIOL [Concomitant]
     Active Substance: CALCITRIOL
     Indication: Vitamin supplementation
     Dosage: UNK
     Route: 065
     Dates: start: 20200729
  10. AMLODIPINE [Concomitant]
     Active Substance: AMLODIPINE BESYLATE
     Indication: Essential hypertension
     Dosage: UNK
     Route: 065
     Dates: start: 20211210
  11. CANDESARTAN CILEXETIL [Concomitant]
     Active Substance: CANDESARTAN CILEXETIL
     Indication: Essential hypertension
     Dosage: UNK
     Route: 065
     Dates: start: 20200422
  12. TITIBE [Concomitant]
     Indication: Dermatitis
     Dosage: UNK
     Route: 065
     Dates: start: 20220207
  13. ENCOVER [Concomitant]
     Indication: Nutritional supplementation
     Dosage: UNK, SOLUTION
     Route: 065
     Dates: start: 20220615
  14. PROTOPIC [Concomitant]
     Active Substance: TACROLIMUS
     Indication: Dermatitis
     Dosage: UNK
     Route: 065
     Dates: start: 20220519

REACTIONS (1)
  - Retinal haemorrhage [Recovering/Resolving]

NARRATIVE: CASE EVENT DATE: 20220816
